FAERS Safety Report 12387782 (Version 1)
Quarter: 2016Q2

REPORT INFORMATION
  Report Type: Spontaneous
  Country: BR (occurrence: BR)
  Receive Date: 20160520
  Receipt Date: 20160520
  Transmission Date: 20160815
  Serious: Yes (Other)
  Sender: FDA-Public Use
  Company Number: BR-AMGEN-BRASP2016050442

PATIENT
  Age: 64 Year
  Sex: Male

DRUGS (2)
  1. ENBREL [Suspect]
     Active Substance: ETANERCEPT
     Dosage: 50 MG, EVERY 10 DAYS
     Route: 065
     Dates: start: 201601, end: 20160429
  2. ENBREL [Suspect]
     Active Substance: ETANERCEPT
     Indication: RHEUMATOID ARTHRITIS
     Dosage: 50 MG, WEEKLY (EVERY 7 DAYS)
     Route: 065
     Dates: start: 2014

REACTIONS (11)
  - Face injury [Unknown]
  - Fall [Unknown]
  - Pain in extremity [Unknown]
  - Pruritus [Unknown]
  - Syncope [Unknown]
  - Inappropriate schedule of drug administration [Unknown]
  - Burning sensation [Unknown]
  - Blister [Unknown]
  - Headache [Unknown]
  - Tinea versicolour [Unknown]
  - Skin exfoliation [Unknown]

NARRATIVE: CASE EVENT DATE: 201601
